FAERS Safety Report 12739627 (Version 3)
Quarter: 2018Q1

REPORT INFORMATION
  Report Type: Report from Study
  Country: MX (occurrence: MX)
  Receive Date: 20160913
  Receipt Date: 20180329
  Transmission Date: 20180508
  Serious: Yes (Other)
  Sender: FDA-Public Use
  Company Number: MX-TAKEDA-2016TUS015989

PATIENT
  Age: 36 Year
  Sex: Male
  Weight: 73 kg

DRUGS (11)
  1. FENTANYL. [Concomitant]
     Active Substance: FENTANYL
     Indication: SIGMOIDOSCOPY
     Dosage: 100 ?G, UNK
     Route: 042
     Dates: start: 20150825, end: 20150825
  2. MESALAZINE [Concomitant]
     Active Substance: MESALAMINE
     Dosage: 800 MG, UNK
     Route: 048
     Dates: start: 201508, end: 20160817
  3. VEDOLIZUMAB [Suspect]
     Active Substance: VEDOLIZUMAB
     Indication: COLITIS ULCERATIVE
     Dosage: 300 MG, UNK
     Route: 042
     Dates: start: 20160901, end: 20160901
  4. PROPOFOL. [Concomitant]
     Active Substance: PROPOFOL
     Indication: SIGMOIDOSCOPY
     Dosage: 200 MG, UNK
     Route: 042
     Dates: start: 20150825, end: 20150825
  5. MESALAZINE [Concomitant]
     Active Substance: MESALAMINE
     Indication: COLITIS ULCERATIVE
     Dosage: 1000 MG, UNK
     Route: 048
     Dates: start: 201508
  6. MESALAZINE [Concomitant]
     Active Substance: MESALAMINE
     Dosage: 500 MG, Q8HR
     Route: 048
     Dates: start: 201512, end: 20160907
  7. AZATHIOPRIN [Concomitant]
     Active Substance: AZATHIOPRINE
     Indication: COLITIS ULCERATIVE
     Dosage: 50 MG, UNK
     Route: 048
     Dates: start: 201509
  8. MESALAZINE [Concomitant]
     Active Substance: MESALAMINE
     Dosage: 500 MG, QD
     Route: 054
     Dates: start: 201512, end: 20160817
  9. METAZOLAM [Concomitant]
     Dosage: 1 MG, UNK
     Route: 042
     Dates: start: 20150825, end: 20150825
  10. PLACEBO [Suspect]
     Active Substance: UNSPECIFIED INGREDIENT
     Indication: COLITIS ULCERATIVE
     Dosage: UNK
     Route: 065
  11. PICOPREP [Concomitant]
     Active Substance: ANHYDROUS CITRIC ACID\MAGNESIUM OXIDE\SODIUM PICOSULFATE
     Indication: CONSTIPATION
     Dosage: 10/3.5/12 MG, UNK
     Route: 048
     Dates: start: 20160824, end: 20160825

REACTIONS (1)
  - Seizure [Recovered/Resolved]

NARRATIVE: CASE EVENT DATE: 20160901
